FAERS Safety Report 9229176 (Version 1)
Quarter: 2013Q2

REPORT INFORMATION
  Report Type: Spontaneous
  Country: US (occurrence: US)
  Receive Date: 20130412
  Receipt Date: 20130412
  Transmission Date: 20140414
  Serious: Yes (Hospitalization, Other)
  Sender: FDA-Public Use
  Company Number: US-ASTELLAS-2011US007661

PATIENT
  Age: 64 Year
  Sex: Male
  Weight: 61 kg

DRUGS (6)
  1. PROGRAF [Suspect]
     Indication: LUNG TRANSPLANT
     Dosage: 1 MG, BID
     Route: 048
     Dates: start: 20110814
  2. PROGRAF [Suspect]
     Dosage: 4 MG, UID/QD
     Route: 048
  3. ANTIBIOTICS [Suspect]
     Indication: PRODUCT USED FOR UNKNOWN INDICATION
     Dosage: UNK
     Route: 065
  4. PREDNISONE [Concomitant]
     Indication: PRODUCT USED FOR UNKNOWN INDICATION
     Dosage: 10 MG, UID/QD
     Route: 048
  5. VALCYTE [Concomitant]
     Indication: ANTIVIRAL TREATMENT
     Dosage: 450 MG, UID/QD
     Route: 048
  6. VFEND [Concomitant]
     Indication: ANTIFUNGAL TREATMENT
     Dosage: 200 MG, BID
     Route: 048

REACTIONS (12)
  - Off label use [Unknown]
  - Haemoglobin abnormal [Unknown]
  - Infection [Unknown]
  - Red blood cell count abnormal [Unknown]
  - Blood glucose increased [Unknown]
  - Respiratory failure [Not Recovered/Not Resolved]
  - Blood alkaline phosphatase increased [Unknown]
  - Blood albumin decreased [Unknown]
  - Blood creatinine increased [Unknown]
  - Blood urea increased [Unknown]
  - Blood potassium increased [Unknown]
  - Blood sodium decreased [Unknown]
